FAERS Safety Report 9419173 (Version 1)
Quarter: 2013Q3

REPORT INFORMATION
  Report Type: Spontaneous
  Country: JP (occurrence: JP)
  Receive Date: 20130725
  Receipt Date: 20130725
  Transmission Date: 20140515
  Serious: Yes (Other)
  Sender: FDA-Public Use
  Company Number: JP-ASTRAZENECA-2013SE54658

PATIENT
  Age: 70 Year
  Sex: Female

DRUGS (1)
  1. PULMICORT TURBUHALER [Suspect]
     Indication: COUGH
     Dosage: 100 MICRO GRAMS, 112 DOSES
     Route: 055

REACTIONS (1)
  - Nocardiosis [Recovering/Resolving]
